FAERS Safety Report 7387777-0 (Version None)
Quarter: 2011Q1

REPORT INFORMATION
  Report Type: 
  Country: None (occurrence: None)
  Receive Date: 20110331
  Receipt Date: 20110323
  Transmission Date: 20110831
  Serious: Yes (Hospitalization)
  Sender: FDA-Public Use
  Company Number: CH-B.I. PHARMACEUTICALS,INC./RIDGEFIELD-2011-AP-00173SI

PATIENT
  Age: 88 Year
  Sex: Male

DRUGS (10)
  1. NITRODERM [Suspect]
     Dosage: 5 MG
     Route: 062
     Dates: end: 20110207
  2. PROSCAR [Concomitant]
     Dosage: 5 MG
     Route: 048
  3. TORSEMIDE [Suspect]
     Dosage: 10 MG
     Route: 048
     Dates: end: 20110207
  4. RECORMON [Concomitant]
     Dosage: 2000 MU
     Route: 051
  5. SORBISTERIT [Concomitant]
     Dosage: 1DF DOSAGE FORM
     Route: 048
     Dates: end: 20110207
  6. IMOVANE [Suspect]
     Dosage: 7.5 MG
     Route: 048
     Dates: end: 20110207
  7. PRADIF [Suspect]
     Indication: PROSTATE CANCER
     Dosage: 400 MCG
     Route: 048
  8. PANTOZOL [Concomitant]
     Dosage: 20 MG
     Route: 048
  9. REMERON [Suspect]
     Indication: DEPRESSION
     Dosage: 45 MG
     Route: 048
  10. XEFO [Concomitant]
     Dosage: AS NECESSARY
     Route: 048
     Dates: end: 20110207

REACTIONS (4)
  - TACHYCARDIA [None]
  - CONTUSION [None]
  - INTENTIONAL OVERDOSE [None]
  - FALL [None]
